FAERS Safety Report 6527758-X (Version None)
Quarter: 2009Q4

REPORT INFORMATION
  Report Type: 
  Country: None (occurrence: None)
  Receive Date: 20091231
  Receipt Date: 20091217
  Transmission Date: 20100525
  Serious: Yes (Hospitalization)
  Sender: FDA-Public Use
  Company Number: VAL_00347_2009

PATIENT
  Age: 14 Year
  Sex: Male

DRUGS (2)
  1. CARBAMAZEPINE [Suspect]
     Indication: EPILEPSY
     Dosage: (DF) (6 WEEKS 2 DAYS UNTIL NOT CONTINUING)
  2. LAMOTRIGINE [Suspect]
     Indication: EPILEPSY
     Dosage: (DF) (7 WEEKS 3 DAYS UNTIL NOT CONTINUING)

REACTIONS (12)
  - DERMATITIS EXFOLIATIVE [None]
  - DRUG INTERACTION [None]
  - DRUG RASH WITH EOSINOPHILIA AND SYSTEMIC SYMPTOMS [None]
  - EOSINOPHILIA [None]
  - FACE OEDEMA [None]
  - HEPATIC FUNCTION ABNORMAL [None]
  - INTERSTITIAL LUNG DISEASE [None]
  - LEUKOCYTOSIS [None]
  - LIVER FUNCTION TEST ABNORMAL [None]
  - LYMPHADENOPATHY [None]
  - OROPHARYNGEAL PAIN [None]
  - WHITE BLOOD CELL COUNT ABNORMAL [None]
